FAERS Safety Report 9359632 (Version 1)
Quarter: 2013Q2

REPORT INFORMATION
  Report Type: Report from Study
  Country: DE (occurrence: DE)
  Receive Date: 20130620
  Receipt Date: 20130620
  Transmission Date: 20140414
  Serious: No
  Sender: FDA-Public Use
  Company Number: PHHY2013DE060544

PATIENT
  Sex: Male

DRUGS (6)
  1. AMN107 [Suspect]
     Indication: CHRONIC MYELOID LEUKAEMIA
     Dosage: 300 MG, QD
     Route: 048
     Dates: start: 20121025, end: 20121114
  2. ALLOPURINOL [Concomitant]
     Dosage: 300 MG, UNK
  3. METOPROLOL [Concomitant]
     Dosage: 100 MG, UNK
  4. HCT AAA [Concomitant]
     Dosage: 12.5 MG, UNK
  5. HCT AAA [Concomitant]
     Dosage: 5 MG, UNK
  6. OMEPRAZOLE [Concomitant]
     Dosage: 40 MG, UNK
     Dates: start: 20121016

REACTIONS (2)
  - Nausea [Recovered/Resolved]
  - Abdominal discomfort [Recovered/Resolved]
